FAERS Safety Report 22392323 (Version 1)
Quarter: 2023Q2

REPORT INFORMATION
  Report Type: Spontaneous
  Country: FR (occurrence: FR)
  Receive Date: 20230601
  Receipt Date: 20230601
  Transmission Date: 20230721
  Serious: Yes (Death, Other)
  Sender: FDA-Public Use
  Company Number: None

PATIENT
  Age: 64 Year
  Sex: Female

DRUGS (3)
  1. CAPECITABINE [Suspect]
     Active Substance: CAPECITABINE
     Indication: Breast cancer
     Route: 048
     Dates: start: 20211004
  2. CYCLOPHOSPHAMIDE\EPIRUBICIN HYDROCHLORIDE\FLUOROURACIL [Suspect]
     Active Substance: CYCLOPHOSPHAMIDE\EPIRUBICIN HYDROCHLORIDE\FLUOROURACIL
     Indication: Breast cancer
     Dosage: 3 CYCLES
     Dates: start: 20210216, end: 20210330
  3. DOCETAXEL [Suspect]
     Active Substance: DOCETAXEL
     Indication: Breast cancer
     Dosage: 3 CYCLES
     Dates: start: 20210420, end: 20210601

REACTIONS (12)
  - Discoloured vomit [Fatal]
  - Diarrhoea [Fatal]
  - Palmar-plantar erythrodysaesthesia syndrome [Fatal]
  - Mucosal inflammation [Fatal]
  - Neutropenia [Fatal]
  - Stomatitis [Unknown]
  - Pyrexia [Unknown]
  - Aplasia [Unknown]
  - Cough [Unknown]
  - Hyperglycaemia [Unknown]
  - Electrolyte imbalance [Unknown]
  - Aspiration [Fatal]

NARRATIVE: CASE EVENT DATE: 20211018
